FAERS Safety Report 4295073-3 (Version None)
Quarter: 2004Q1

REPORT INFORMATION
  Report Type: 
  Country: None (occurrence: None)
  Receive Date: 20040212
  Receipt Date: 20040128
  Transmission Date: 20041129
  Serious: Yes (Hospitalization)
  Sender: FDA-Public Use
  Company Number: L04-USA-00436-01

PATIENT
  Age: 36 Year
  Sex: Male

DRUGS (1)
  1. ESCITALOPRAM [Suspect]
     Indication: MAJOR DEPRESSION
     Dosage: 20 MG QD PO
     Route: 048

REACTIONS (5)
  - GRANDIOSITY [None]
  - INSOMNIA [None]
  - MANIA [None]
  - PSYCHOMOTOR AGITATION [None]
  - PSYCHOTIC DISORDER [None]
